FAERS Safety Report 19034411 (Version 2)
Quarter: 2021Q2

REPORT INFORMATION
  Report Type: Spontaneous
  Country: IT (occurrence: IT)
  Receive Date: 20210320
  Receipt Date: 20210525
  Transmission Date: 20210717
  Serious: Yes (Other)
  Sender: FDA-Public Use
  Company Number: IT-AUROBINDO-AUR-APL-2021-010856

PATIENT
  Age: 55 Year
  Sex: Male
  Weight: 72 kg

DRUGS (5)
  1. LEVOLEUCOVORIN. [Suspect]
     Active Substance: LEVOLEUCOVORIN
     Indication: RECTAL ADENOCARCINOMA
     Dosage: 275 MILLIGRAM, CYCLICAL
     Route: 042
     Dates: start: 20210118
  2. IRINOTECAN [Suspect]
     Active Substance: IRINOTECAN
     Indication: RECTAL ADENOCARCINOMA
     Dosage: 250 MILLIGRAM, CYCLICAL
     Route: 042
     Dates: start: 20210215
  3. FLUOROURACIL. [Suspect]
     Active Substance: FLUOROURACIL
     Indication: RECTAL ADENOCARCINOMA
     Dosage: 555 MILLIGRAM, CYCLICAL
     Route: 040
     Dates: start: 20210118
  4. AVASTIN [Suspect]
     Active Substance: BEVACIZUMAB
     Indication: RECTAL ADENOCARCINOMA
     Dosage: 360 MILLIGRAM, CYCLICAL
     Route: 042
     Dates: start: 20210118
  5. FLUOROURACIL. [Suspect]
     Active Substance: FLUOROURACIL
     Dosage: 3330 MILLIGRAM, CYCLICAL
     Route: 042
     Dates: start: 20210118

REACTIONS (3)
  - Neutropenia [Not Recovered/Not Resolved]
  - Constipation [Not Recovered/Not Resolved]
  - Diarrhoea [Not Recovered/Not Resolved]

NARRATIVE: CASE EVENT DATE: 20210301
